FAERS Safety Report 18904235 (Version 1)
Quarter: 2021Q1

REPORT INFORMATION
  Report Type: Spontaneous
  Country: US (occurrence: US)
  Receive Date: 20210217
  Receipt Date: 20210217
  Transmission Date: 20210420
  Serious: No
  Sender: FDA-Public Use
  Company Number: None

PATIENT
  Age: 69 Year
  Sex: Female
  Weight: 95.4 kg

DRUGS (12)
  1. VICTOZA [Concomitant]
     Active Substance: LIRAGLUTIDE
  2. VITAMIN D3 [Concomitant]
     Active Substance: CHOLECALCIFEROL
  3. MELATONINE [Concomitant]
     Active Substance: MELATONIN
  4. VITAMINE C 1000 [Concomitant]
  5. QUINAPRIL. [Concomitant]
     Active Substance: QUINAPRIL
  6. SYNTHROID [Concomitant]
     Active Substance: LEVOTHYROXINE SODIUM
  7. ASPIRIN 81MG [Concomitant]
     Active Substance: ASPIRIN
  8. ZINC. [Concomitant]
     Active Substance: ZINC
  9. LIOTHYRONINE [Concomitant]
     Active Substance: LIOTHYRONINE
  10. IRBESARTAN/HCTZ 150/12.5 [Suspect]
     Active Substance: HYDROCHLOROTHIAZIDE\IRBESARTAN
     Indication: HYPERTENSION
     Route: 048
     Dates: start: 20201005, end: 20210203
  11. TURMERIC [Concomitant]
     Active Substance: HERBALS\TURMERIC
  12. MD [Concomitant]

REACTIONS (1)
  - Tinnitus [None]

NARRATIVE: CASE EVENT DATE: 20210120
